FAERS Safety Report 4883838-6 (Version None)
Quarter: 2006Q1

REPORT INFORMATION
  Report Type: 
  Country: None (occurrence: None)
  Receive Date: 20060113
  Receipt Date: 20060103
  Transmission Date: 20060701
  Serious: Yes (Other)
  Sender: FDA-Public Use
  Company Number: EM2006-0003

PATIENT
  Age: 80 Year
  Sex: Female

DRUGS (10)
  1. TOBI [Suspect]
     Indication: LUNG INFECTION
     Dosage: 300 MG, BID, INHALATION
     Route: 055
     Dates: start: 20050714, end: 20050718
  2. TOBI [Suspect]
     Indication: LUNG INFECTION
     Dosage: 300 MG, BID, INHALATION
     Route: 055
     Dates: start: 20051227
  3. LIPITOR [Concomitant]
  4. ADVAIR DISKUS (FLUTICASONE PROPIONATE) [Concomitant]
  5. FLECANIDE [Concomitant]
  6. CARDIA XT [Concomitant]
  7. PREVACID [Concomitant]
  8. SINGULAIR [Concomitant]
  9. NASONEX [Concomitant]
  10. ADVIL [Concomitant]

REACTIONS (4)
  - COLLAPSE OF LUNG [None]
  - DYSPHONIA [None]
  - VOCAL CORD INFLAMMATION [None]
  - WRONG TECHNIQUE IN DRUG USAGE PROCESS [None]
